FAERS Safety Report 5599690-X (Version None)
Quarter: 2008Q1

REPORT INFORMATION
  Report Type: 
  Country: None (occurrence: None)
  Receive Date: 20080123
  Receipt Date: 20080114
  Transmission Date: 20080703
  Serious: Yes (Death, Other)
  Sender: FDA-Public Use
  Company Number: FR-BRISTOL-MYERS SQUIBB COMPANY-14047245

PATIENT
  Age: 69 Year
  Sex: Male

DRUGS (20)
  1. ENDOXAN [Suspect]
     Indication: NON-HODGKIN'S LYMPHOMA
     Route: 042
     Dates: start: 20071214, end: 20071214
  2. DOXORUBICIN HCL [Suspect]
     Route: 042
     Dates: start: 20071214, end: 20071214
  3. VINCRISTINE SULFATE [Suspect]
     Indication: NON-HODGKIN'S LYMPHOMA
     Route: 042
     Dates: start: 20071214, end: 20071214
  4. METHOTREXATE [Suspect]
     Indication: NON-HODGKIN'S LYMPHOMA
     Route: 037
     Dates: start: 20071217, end: 20071217
  5. HYDROCORTISONE [Suspect]
     Indication: NON-HODGKIN'S LYMPHOMA
     Route: 037
     Dates: start: 20071217, end: 20071217
  6. ARACYTINE [Suspect]
     Indication: NON-HODGKIN'S LYMPHOMA
     Route: 037
     Dates: start: 20071217, end: 20071217
  7. MABTHERA [Suspect]
     Indication: NON-HODGKIN'S LYMPHOMA
     Route: 042
     Dates: start: 20071214, end: 20071214
  8. ZOMETA [Concomitant]
     Route: 042
     Dates: start: 20071211, end: 20071211
  9. ALLOPURINOL [Concomitant]
     Dates: start: 20071214, end: 20071216
  10. DOLIPRANE [Concomitant]
     Dates: start: 20071218, end: 20071218
  11. XATRAL [Concomitant]
  12. NEURONTIN [Concomitant]
  13. SEVREDOL [Concomitant]
  14. LOXEN LP [Concomitant]
     Indication: BLOOD PRESSURE INCREASED
     Route: 042
     Dates: start: 20071214, end: 20071217
  15. MESNA [Concomitant]
     Route: 048
     Dates: start: 20071214, end: 20071214
  16. CORTANCYL [Concomitant]
     Dates: start: 20071215, end: 20071218
  17. ZOPHREN [Concomitant]
     Route: 042
     Dates: start: 20071214, end: 20071214
  18. POLARAMINE [Concomitant]
     Route: 042
     Dates: start: 20071214, end: 20071214
  19. PERFALGAN [Concomitant]
     Route: 042
     Dates: start: 20071214, end: 20071214
  20. METHYLPREDNISOLONE [Concomitant]
     Route: 042
     Dates: start: 20071214, end: 20071214

REACTIONS (11)
  - AGITATION [None]
  - BODY TEMPERATURE INCREASED [None]
  - CONVULSION [None]
  - DEATH [None]
  - HEART RATE DECREASED [None]
  - HYPOTENSION [None]
  - LOSS OF CONSCIOUSNESS [None]
  - MALAISE [None]
  - SOMNOLENCE [None]
  - URINARY INCONTINENCE [None]
  - VOMITING [None]
